FAERS Safety Report 23679069 (Version 1)
Quarter: 2024Q1

REPORT INFORMATION
  Report Type: Spontaneous
  Country: US (occurrence: None)
  Receive Date: 20240326
  Receipt Date: 20240326
  Transmission Date: 20240409
  Serious: No
  Sender: FDA-Public Use
  Company Number: None

PATIENT
  Age: 74 Year
  Sex: Female

DRUGS (1)
  1. XDEMVY [Suspect]
     Active Substance: LOTILANER
     Indication: Demodex blepharitis
     Dosage: 1 GTT DROP TWICE A DAY OPHTHALMIC?
     Route: 047
     Dates: start: 20240310

REACTIONS (2)
  - Lacrimation increased [None]
  - Eye pruritus [None]

NARRATIVE: CASE EVENT DATE: 20240310
